FAERS Safety Report 14516655 (Version 2)
Quarter: 2018Q4

REPORT INFORMATION
  Report Type: Spontaneous
  Country: US (occurrence: US)
  Receive Date: 20180212
  Receipt Date: 20181112
  Transmission Date: 20190204
  Serious: No
  Sender: FDA-Public Use
  Company Number: US-AUROBINDO-AUR-APU-2017-43416

PATIENT
  Sex: Female

DRUGS (1)
  1. ESOMEPRAZOLE MAGNESIUM DELAYED-RELEASE CAPSULES 40 MG [Suspect]
     Active Substance: ESOMEPRAZOLE MAGNESIUM
     Indication: PRODUCT USED FOR UNKNOWN INDICATION
     Dosage: UNK
     Route: 065
     Dates: start: 20171025, end: 20171026

REACTIONS (6)
  - Gastroenteritis viral [Recovered/Resolved]
  - Condition aggravated [Recovered/Resolved]
  - Muscle spasms [Recovered/Resolved]
  - Cardiac disorder [Recovered/Resolved]
  - Feeling abnormal [Recovered/Resolved]
  - Product substitution issue [Recovered/Resolved]

NARRATIVE: CASE EVENT DATE: 20171025
